FAERS Safety Report 9784778 (Version 1)
Quarter: 2013Q4

REPORT INFORMATION
  Report Type: Spontaneous
  Country: CN (occurrence: CN)
  Receive Date: 20131227
  Receipt Date: 20131227
  Transmission Date: 20140711
  Serious: Yes (Death, Hospitalization)
  Sender: FDA-Public Use
  Company Number: CN-ROCHE-1321335

PATIENT
  Age: 3 Year
  Sex: Male

DRUGS (2)
  1. GANCICLOVIR [Suspect]
     Indication: PYREXIA
     Route: 065
     Dates: start: 201306
  2. CEFTAZIDIME [Suspect]
     Indication: PYREXIA
     Route: 065
     Dates: start: 201306

REACTIONS (2)
  - Respiratory failure [Fatal]
  - Convulsion [Not Recovered/Not Resolved]
